FAERS Safety Report 19605128 (Version 1)
Quarter: 2021Q3

REPORT INFORMATION
  Report Type: Spontaneous
  Country: US (occurrence: US)
  Receive Date: 20210723
  Receipt Date: 20210723
  Transmission Date: 20211014
  Serious: No
  Sender: FDA-Public Use
  Company Number: US-SA-2021SA242487

PATIENT
  Sex: Male

DRUGS (5)
  1. ASPIRIN EC [Concomitant]
     Active Substance: ASPIRIN
  2. DUPIXENT [Suspect]
     Active Substance: DUPILUMAB
     Indication: DERMATITIS ATOPIC
     Dosage: 300 MG, QOW
     Route: 058
  3. MELATONIN [Concomitant]
     Active Substance: MELATONIN
  4. LORATADINE. [Concomitant]
     Active Substance: LORATADINE
  5. VITAMIN D3 [Concomitant]
     Active Substance: CHOLECALCIFEROL

REACTIONS (3)
  - Skin disorder [Unknown]
  - Wound [Unknown]
  - Product storage error [Unknown]
